FAERS Safety Report 19522368 (Version 1)
Quarter: 2021Q3

REPORT INFORMATION
  Report Type: Spontaneous
  Country: US (occurrence: US)
  Receive Date: 20210712
  Receipt Date: 20210712
  Transmission Date: 20211014
  Serious: No
  Sender: FDA-Public Use
  Company Number: US-MYOVANT SCIENCES GMBH-2021MYSCI0500025

PATIENT
  Age: 62 Year
  Sex: Male

DRUGS (2)
  1. ORGOVYX [Suspect]
     Active Substance: RELUGOLIX
     Dosage: 120 MILLIGRAM, QD
     Route: 048
     Dates: start: 20210501
  2. ORGOVYX [Suspect]
     Active Substance: RELUGOLIX
     Indication: PRODUCT USED FOR UNKNOWN INDICATION
     Dosage: 360 MILLIGRAM, ONE TIME DOSE
     Route: 048
     Dates: start: 20210430, end: 20210430

REACTIONS (1)
  - Depression [Not Recovered/Not Resolved]

NARRATIVE: CASE EVENT DATE: 20210501
